FAERS Safety Report 20116394 (Version 2)
Quarter: 2022Q1

REPORT INFORMATION
  Report Type: Report from Study
  Country: CA (occurrence: CA)
  Receive Date: 20211126
  Receipt Date: 20220201
  Transmission Date: 20220423
  Serious: Yes (Other)
  Sender: FDA-Public Use
  Company Number: CA-ABBVIE-21K-028-4042314-00

PATIENT
  Sex: Female

DRUGS (1)
  1. HUMIRA [Suspect]
     Active Substance: ADALIMUMAB
     Indication: Crohn^s disease
     Route: 058
     Dates: start: 20100826

REACTIONS (12)
  - Hernia [Unknown]
  - Hepatic cirrhosis [Unknown]
  - Cholecystectomy [Unknown]
  - Weight decreased [Recovered/Resolved]
  - Procedural pain [Unknown]
  - Post procedural complication [Unknown]
  - Abnormal faeces [Unknown]
  - Feeding disorder [Unknown]
  - Postoperative adhesion [Unknown]
  - Type 2 diabetes mellitus [Unknown]
  - Tenderness [Unknown]
  - Abdominal pain [Unknown]

NARRATIVE: CASE EVENT DATE: 20140101
